FAERS Safety Report 8364244-9 (Version None)
Quarter: 2012Q2

REPORT INFORMATION
  Report Type: 
  Country: None (occurrence: None)
  Receive Date: 20120516
  Receipt Date: 20120515
  Transmission Date: 20120825
  Serious: Yes (Death, Other)
  Sender: FDA-Public Use
  Company Number: PHHY2011GT78485

PATIENT
  Age: 92 Year
  Sex: Female

DRUGS (2)
  1. DIOVAN HCT [Suspect]
     Indication: HYPERTENSION
     Dosage: 1 DF (160/12.5 MG), DAILY
     Route: 048
  2. ASPIRIN [Concomitant]
     Dosage: 100 MG, DAILY
     Route: 048

REACTIONS (4)
  - MOVEMENT DISORDER [None]
  - HYPOPHAGIA [None]
  - HIP FRACTURE [None]
  - MALNUTRITION [None]
